FAERS Safety Report 17157603 (Version 1)
Quarter: 2019Q4

REPORT INFORMATION
  Report Type: Spontaneous
  Country: US (occurrence: US)
  Receive Date: 20191216
  Receipt Date: 20191216
  Transmission Date: 20200122
  Serious: Yes (Other)
  Sender: FDA-Public Use
  Company Number: NVSC2019US067081

PATIENT
  Sex: Male

DRUGS (1)
  1. ENTRESTO [Suspect]
     Active Substance: SACUBITRIL\VALSARTAN
     Indication: MYOCARDIAL INFARCTION
     Dosage: UNK (HIGHEST DOSE)
     Route: 065

REACTIONS (3)
  - Dizziness [Recovering/Resolving]
  - Product use in unapproved indication [Unknown]
  - Cardiac disorder [Unknown]
